FAERS Safety Report 6265534-6 (Version None)
Quarter: 2009Q3

REPORT INFORMATION
  Report Type: 
  Country: None (occurrence: None)
  Receive Date: 20090709
  Receipt Date: 20090709
  Transmission Date: 20100115
  Serious: Yes (Life-Threatening, Hospitalization, Other)
  Sender: FDA-Public Use
  Company Number: None

PATIENT
  Age: 55 Year
  Sex: Male
  Weight: 84.369 kg

DRUGS (2)
  1. VERAPAMIL [Suspect]
     Indication: HYPERTENSION
     Dosage: 240 MG UNK
     Dates: start: 20090101, end: 20090707
  2. .. [Concomitant]

REACTIONS (4)
  - DEHYDRATION [None]
  - HYPOGLYCAEMIA [None]
  - MUSCLE SPASMS [None]
  - VISION BLURRED [None]
